FAERS Safety Report 8769663 (Version 6)
Quarter: 2013Q2

REPORT INFORMATION
  Report Type: Spontaneous
  Country: FR (occurrence: FR)
  Receive Date: 20120904
  Receipt Date: 20130627
  Transmission Date: 20140414
  Serious: Yes (Death)
  Sender: FDA-Public Use
  Company Number: FR-PFIZER INC-2012216401

PATIENT
  Age: 42 Year
  Sex: Male
  Weight: 90 kg

DRUGS (12)
  1. DIGOXINE NATIVELLE [Concomitant]
     Dosage: UNK
     Dates: end: 20111013
  2. LASILIX [Concomitant]
     Dosage: UNK
  3. PLAVIX [Concomitant]
     Dosage: UNK
  4. ALLOPURINOL [Concomitant]
     Dosage: UNK
  5. KARDEGIC [Concomitant]
     Dosage: UNK
  6. PROCORALAN [Concomitant]
     Dosage: UNK
  7. CRESTOR [Concomitant]
     Dosage: UNK
  8. BURINEX [Concomitant]
     Dosage: UNK
  9. ESIDREX [Concomitant]
     Dosage: UNK
  10. INSPRA [Concomitant]
     Dosage: UNK
  11. CORDARONE [Suspect]
     Indication: ARRHYTHMIA
     Dosage: 200 MG, SINGLE
     Route: 048
     Dates: start: 20111014, end: 20111014
  12. CORDARONE [Suspect]
     Indication: MYOCARDIAL ISCHAEMIA

REACTIONS (1)
  - Sudden death [Fatal]
